FAERS Safety Report 18080229 (Version 1)
Quarter: 2020Q3

REPORT INFORMATION
  Report Type: Report from Study
  Country: US (occurrence: US)
  Receive Date: 20200728
  Receipt Date: 20200728
  Transmission Date: 20201103
  Serious: Yes (Other)
  Sender: FDA-Public Use
  Company Number: US-MYLANLABS-2020M1067126

PATIENT
  Sex: Male
  Weight: 100 kg

DRUGS (1)
  1. GLATIRAMER ACETATE INJECTION [Suspect]
     Active Substance: GLATIRAMER ACETATE
     Indication: RELAPSING-REMITTING MULTIPLE SCLEROSIS
     Dosage: 3 TIMES PER WEEK
     Route: 058

REACTIONS (8)
  - Musculoskeletal stiffness [Unknown]
  - Vomiting [Unknown]
  - Pyrexia [Unknown]
  - Idiosyncratic drug reaction [Unknown]
  - Leukocytosis [Unknown]
  - Injection site erythema [Unknown]
  - Injection site inflammation [Unknown]
  - Nausea [Unknown]

NARRATIVE: CASE EVENT DATE: 2020
